FAERS Safety Report 9299796 (Version 1)
Quarter: 2013Q2

REPORT INFORMATION
  Report Type: Spontaneous
  Country: US (occurrence: US)
  Receive Date: 20130521
  Receipt Date: 20130521
  Transmission Date: 20140414
  Serious: Yes (Hospitalization)
  Sender: FDA-Public Use
  Company Number: US-AMGEN-USASP2013033984

PATIENT
  Age: 77 Year
  Sex: Male

DRUGS (5)
  1. SENSIPAR [Suspect]
     Indication: PRODUCT USED FOR UNKNOWN INDICATION
     Dosage: 30 MG, QD
     Route: 048
  2. CLOPIDOGREL [Concomitant]
  3. GUAIFENESIN [Concomitant]
  4. MEGESTROL [Concomitant]
  5. OMEPRAZOLE [Concomitant]

REACTIONS (3)
  - Sepsis [Unknown]
  - Cystitis [Unknown]
  - Gastrointestinal haemorrhage [Unknown]
